FAERS Safety Report 8347582-5 (Version None)
Quarter: 2012Q2

REPORT INFORMATION
  Report Type: 
  Country: None (occurrence: None)
  Receive Date: 20120509
  Receipt Date: 20120501
  Transmission Date: 20120825
  Serious: Yes (Disabling)
  Sender: FDA-Public Use
  Company Number: US-BRISTOL-MYERS SQUIBB COMPANY-16459570

PATIENT
  Age: 54 Year
  Sex: Female

DRUGS (18)
  1. ASTELIN [Concomitant]
     Dosage: 1DF=2 SPRAYS EACH NOSTRIL
  2. ZYRTEC [Concomitant]
  3. METHOTREXATE [Suspect]
     Dosage: WEEKLY ON MONDY
     Route: 048
  4. MOMETASONE FUROATE [Concomitant]
     Dosage: 1DF-1 PUFF
  5. ALBUTEROL [Concomitant]
     Dosage: 1DF=2 PUFFS,QID AS NEEDED
  6. CELEBREX [Concomitant]
  7. NEURONTIN [Concomitant]
     Dosage: 1DF=300MG,900MG.300MG:7AM,3PM;900MG:11PM
  8. POTASSIUM CHLORIDE [Concomitant]
  9. VALIUM [Concomitant]
     Dosage: 5 MG AT BEDTIME AS NEEDED
     Route: 048
  10. DYAZIDE [Concomitant]
     Dosage: 1DF-2 CAPS
  11. ORENCIA [Suspect]
     Indication: RHEUMATOID ARTHRITIS
     Dosage: NO OF INFUSION:3, LAST INF ON: 3MAR2012
     Route: 042
     Dates: start: 20111207
  12. OXYCODONE HCL [Concomitant]
     Dosage: BID AS NEEDED
     Route: 048
  13. FOLIC ACID [Concomitant]
  14. SINGULAIR [Concomitant]
  15. OMNARIS [Concomitant]
     Dosage: 1DF-2 SPRAYS
  16. PRILOSEC [Concomitant]
  17. ULTRAM [Concomitant]
     Dosage: BID AS NEEDED
  18. NUCYNTA [Concomitant]

REACTIONS (3)
  - SINUSITIS [None]
  - RHEUMATOID ARTHRITIS [None]
  - ASTHMA [None]
